FAERS Safety Report 10680043 (Version 2)
Quarter: 2015Q1

REPORT INFORMATION
  Report Type: Spontaneous
  Country: US (occurrence: US)
  Receive Date: 20141229
  Receipt Date: 20150109
  Transmission Date: 20150720
  Serious: No
  Sender: FDA-Public Use
  Company Number: US-009507513-1412USA009681

PATIENT
  Age: 62 Year
  Sex: Female

DRUGS (1)
  1. OXYTROL FOR WOMEN [Suspect]
     Active Substance: OXYBUTYNIN
     Indication: URINARY TRACT INFECTION
     Dosage: UNK, UNKNOWN
     Route: 062
     Dates: start: 20141211, end: 20141212

REACTIONS (3)
  - Product use issue [Unknown]
  - Condition aggravated [Unknown]
  - Unevaluable event [Unknown]

NARRATIVE: CASE EVENT DATE: 201412
